FAERS Safety Report 12779757 (Version 3)
Quarter: 2020Q1

REPORT INFORMATION
  Report Type: Spontaneous
  Country: US (occurrence: US)
  Receive Date: 20160926
  Receipt Date: 20200213
  Transmission Date: 20200409
  Serious: No
  Sender: FDA-Public Use
  Company Number: US-PFIZER INC-2016445241

PATIENT
  Age: 48 Year
  Sex: Female
  Weight: 49 kg

DRUGS (2)
  1. METHOTREXATE SODIUM. [Suspect]
     Active Substance: METHOTREXATE SODIUM
     Indication: RHEUMATOID ARTHRITIS
     Dosage: (PULLS IT UP IN AN INSULIN NEEDLE TO 0.5 INJECTION EVERY MONDAY NIGHT ), WEEKLY
  2. XELJANZ [Suspect]
     Active Substance: TOFACITINIB CITRATE
     Indication: RHEUMATOID ARTHRITIS
     Dosage: 5 MG, 2X/DAY
     Route: 048

REACTIONS (12)
  - Movement disorder [Unknown]
  - Influenza [Recovered/Resolved with Sequelae]
  - Pain [Not Recovered/Not Resolved]
  - Nasal congestion [Unknown]
  - Malaise [Unknown]
  - Cough [Not Recovered/Not Resolved]
  - Pyrexia [Unknown]
  - Eye swelling [Unknown]
  - Nausea [Unknown]
  - Fatigue [Not Recovered/Not Resolved]
  - Dyspnoea [Unknown]
  - Eye disorder [Unknown]

NARRATIVE: CASE EVENT DATE: 20200121
